FAERS Safety Report 9419395 (Version 1)
Quarter: 2013Q3

REPORT INFORMATION
  Report Type: Spontaneous
  Country: CN (occurrence: CN)
  Receive Date: 20130723
  Receipt Date: 20130723
  Transmission Date: 20140515
  Serious: Yes (Hospitalization, Other)
  Sender: FDA-Public Use
  Company Number: NPIL/ISO/H/2013/56

PATIENT
  Age: 15 Year
  Sex: Male
  Weight: 35 kg

DRUGS (5)
  1. ISOFLURANE [Suspect]
     Indication: ANAESTHESIA
  2. PHENOBARBITAL SODIUM [Concomitant]
  3. ATROPINE [Concomitant]
  4. PROPOFOL [Concomitant]
  5. FENTANYL [Concomitant]

REACTIONS (6)
  - Hyperthermia malignant [None]
  - Rhabdomyolysis [None]
  - Disseminated intravascular coagulation [None]
  - Acute respiratory distress syndrome [None]
  - Renal failure acute [None]
  - Haemofiltration [None]
